FAERS Safety Report 4343502-9 (Version None)
Quarter: 2004Q2

REPORT INFORMATION
  Report Type: 
  Country: None (occurrence: None)
  Receive Date: 20040421
  Receipt Date: 20040421
  Transmission Date: 20050107
  Serious: No
  Sender: FDA-Public Use
  Company Number: None

PATIENT
  Age: 79 Year
  Sex: Female
  Weight: 103.4201 kg

DRUGS (1)
  1. PERCOCET [Suspect]
     Indication: OSTEOARTHRITIS
     Dosage: 5/325 MG
     Dates: start: 20030901, end: 20031201

REACTIONS (3)
  - DRUG INEFFECTIVE [None]
  - NAUSEA [None]
  - PHARMACEUTICAL PRODUCT COMPLAINT [None]
